FAERS Safety Report 8346414 (Version 5)
Quarter: 2012Q4

REPORT INFORMATION
  Report Type: 
  Country: US (occurrence: US)
  Receive Date: 20120120
  Receipt Date: 20120927
  Transmission Date: 20130627
  Serious: Yes (Hospitalization, Other)
  Sender: FDA-Public Use
  Company Number: US-009507513-1201USA02560

PATIENT

DRUGS (1)
  1. FOSAMAX [Suspect]
     Indication: OSTEOPOROSIS
     Dosage: 70 mg, QW
     Route: 048
     Dates: start: 2004, end: 2009

REACTIONS (25)
  - Intramedullary rod insertion [Unknown]
  - Femur fracture [Unknown]
  - Fall [Unknown]
  - Syncope [Unknown]
  - Uterine disorder [Unknown]
  - Femur fracture [Unknown]
  - Tonsillar disorder [Unknown]
  - Gallbladder disorder [Unknown]
  - Osteopenia [Unknown]
  - Dyslipidaemia [Unknown]
  - Angiopathy [Unknown]
  - Arthritis [Unknown]
  - Osteoarthritis [Unknown]
  - Venous insufficiency [Unknown]
  - Gait disturbance [Unknown]
  - Musculoskeletal chest pain [Unknown]
  - Helicobacter infection [Unknown]
  - Foot operation [Unknown]
  - Bronchitis [Unknown]
  - Bronchial hyperreactivity [Unknown]
  - Haemorrhoids [Unknown]
  - Abdominal pain upper [Unknown]
  - Melanosis coli [Unknown]
  - Haematochezia [Unknown]
  - Knee operation [Unknown]
